FAERS Safety Report 23653197 (Version 3)
Quarter: 2024Q2

REPORT INFORMATION
  Report Type: Spontaneous
  Country: US (occurrence: US)
  Receive Date: 20240320
  Receipt Date: 20240502
  Transmission Date: 20240716
  Serious: No
  Sender: FDA-Public Use
  Company Number: US-PFIZER INC-PV202400037185

PATIENT
  Age: 62 Year
  Sex: Female

DRUGS (2)
  1. INLYTA [Suspect]
     Active Substance: AXITINIB
     Dosage: 5 MG
  2. KEYTRUDA [Concomitant]
     Active Substance: PEMBROLIZUMAB
     Dosage: UNK

REACTIONS (7)
  - Poor quality sleep [Not Recovered/Not Resolved]
  - Fungal infection [Unknown]
  - Fatigue [Unknown]
  - Abnormal dreams [Unknown]
  - Insomnia [Not Recovered/Not Resolved]
  - Ill-defined disorder [Unknown]
  - Weight increased [Unknown]
